FAERS Safety Report 7523968-3 (Version None)
Quarter: 2011Q2

REPORT INFORMATION
  Report Type: 
  Country: None (occurrence: None)
  Receive Date: 20110603
  Receipt Date: 20110517
  Transmission Date: 20111010
  Serious: Yes (Hospitalization)
  Sender: FDA-Public Use
  Company Number: JP-AMGEN-JPNSP2011017514

PATIENT
  Age: 52 Year
  Sex: Male

DRUGS (19)
  1. CINACALCET HYDROCHLORIDE [Suspect]
     Indication: HYPERPARATHYROIDISM SECONDARY
     Dosage: 25 MG, QD
     Route: 048
     Dates: start: 20090601
  2. CINACALCET HYDROCHLORIDE [Suspect]
     Route: 048
     Dates: start: 20101120
  3. RENAGEL                            /01459901/ [Concomitant]
     Dosage: 1.5 G, TID
     Route: 048
  4. IRRIBOW [Concomitant]
     Indication: DIARRHOEA
     Dosage: 5 A?G, QD
     Route: 048
  5. VITAMIN PREPARATIONS [Concomitant]
     Indication: HYPERPARATHYROIDISM SECONDARY
     Route: 042
  6. CINACALCET HYDROCHLORIDE [Suspect]
     Dosage: 50 MG, QD
     Route: 048
  7. BONALON                            /01220301/ [Concomitant]
     Dosage: 35 MG, QWK
     Route: 048
  8. VITAMIN A [Concomitant]
     Route: 042
  9. PLETAL [Concomitant]
     Indication: SHUNT OCCLUSION
     Dosage: 100 MG, BID
     Route: 048
  10. METOPROLOL TARTRATE [Concomitant]
     Dosage: 20 MG, QD
     Route: 048
  11. OXAROL [Concomitant]
     Indication: HYPERPARATHYROIDISM SECONDARY
     Dosage: 5 MG, 3 TIMES/WK
     Route: 040
  12. CLONAZEPAM [Concomitant]
     Dosage: 1 MG, QD
     Route: 048
  13. LOSARTAN POTASSIUM [Concomitant]
     Indication: HYPERTENSION
     Dosage: 50 MG, QD
     Route: 048
  14. CALTAN [Concomitant]
     Indication: HYPERPHOSPHATAEMIA
     Dosage: 1 G, QD
     Route: 048
  15. RABEPRAZOLE SODIUM [Concomitant]
     Indication: GASTRIC ULCER
     Dosage: 10 MG, QD
     Route: 048
  16. BONALON 35MG [Concomitant]
     Indication: OSTEOPOROSIS
     Route: 048
  17. GLAKAY [Concomitant]
     Indication: SHUNT OCCLUSION
     Dosage: 45 MG, TID
     Route: 048
  18. RENAGEL [Concomitant]
     Indication: HYPERPHOSPHATAEMIA
     Route: 048
  19. METOPROLOL TARTRATE [Concomitant]
     Indication: HYPERTENSION
     Route: 048

REACTIONS (1)
  - PARATHYROID HAEMORRHAGE [None]
